FAERS Safety Report 20425021 (Version 1)
Quarter: 2022Q1

REPORT INFORMATION
  Report Type: Report from Study
  Country: US (occurrence: US)
  Receive Date: 20220204
  Receipt Date: 20220204
  Transmission Date: 20220423
  Serious: No
  Sender: FDA-Public Use
  Company Number: US-EXELIXIS-CABO-21036929

PATIENT
  Age: 65 Year
  Sex: Male

DRUGS (2)
  1. CABOMETYX [Suspect]
     Active Substance: CABOZANTINIB S-MALATE
     Indication: Renal cancer
     Dosage: 60 MG, QD
     Route: 048
     Dates: start: 202012
  2. CABOMETYX [Suspect]
     Active Substance: CABOZANTINIB S-MALATE
     Indication: Metastases to bone

REACTIONS (11)
  - Lethargy [Unknown]
  - Skin fissures [Unknown]
  - COVID-19 [Unknown]
  - Hypertension [Unknown]
  - Fatigue [Unknown]
  - Dysphonia [Unknown]
  - Asthenia [Unknown]
  - Diarrhoea [Not Recovered/Not Resolved]
  - Decreased appetite [Unknown]
  - Pain in extremity [Unknown]
  - Taste disorder [Unknown]

NARRATIVE: CASE EVENT DATE: 20210104
